FAERS Safety Report 15977802 (Version 2)
Quarter: 2019Q1

REPORT INFORMATION
  Report Type: Spontaneous
  Country: PT (occurrence: PT)
  Receive Date: 20190218
  Receipt Date: 20190301
  Transmission Date: 20190418
  Serious: Yes (Other)
  Sender: FDA-Public Use
  Company Number: PT-009507513-1902PRT006396

PATIENT
  Age: 15 Month
  Weight: 12 kg

DRUGS (2)
  1. AERIUS (DESLORATADINE) [Concomitant]
     Active Substance: DESLORATADINE
     Dosage: UNK
     Route: 048
  2. SINGULAIR [Suspect]
     Active Substance: MONTELUKAST SODIUM
     Indication: BRONCHIOLITIS
     Dosage: 4 MILLIGRAM, QD (1 PORTFOLIO PER DAY)
     Route: 048
     Dates: start: 20181202, end: 20190207

REACTIONS (4)
  - Aggression [Recovered/Resolved]
  - Anger [Recovered/Resolved]
  - Bruxism [Recovered/Resolved]
  - Screaming [Recovered/Resolved]

NARRATIVE: CASE EVENT DATE: 20181204
